FAERS Safety Report 20484066 (Version 1)
Quarter: 2022Q1

REPORT INFORMATION
  Report Type: Spontaneous
  Country: US (occurrence: None)
  Receive Date: 20220216
  Receipt Date: 20220216
  Transmission Date: 20220424
  Serious: Yes (Death)
  Sender: FDA-Public Use
  Company Number: None

PATIENT
  Sex: Female
  Weight: 80.10 kg

DRUGS (22)
  1. ABIRATERONE [Suspect]
     Active Substance: ABIRATERONE
     Indication: Prostate cancer
     Dosage: FREQUENCY : DAILY;?
     Route: 048
  2. AMITIZA [Concomitant]
     Active Substance: LUBIPROSTONE
  3. AMLODIPINE [Concomitant]
     Active Substance: AMLODIPINE BESYLATE
  4. ATORVASTATIN [Concomitant]
     Active Substance: ATORVASTATIN
  5. BICALUTAMIDE [Concomitant]
     Active Substance: BICALUTAMIDE
  6. CASODEX [Concomitant]
     Active Substance: BICALUTAMIDE
  7. DIOVAN [Concomitant]
     Active Substance: VALSARTAN
  8. DOC-Q-LAX [Concomitant]
  9. FUROSEMIDE [Concomitant]
     Active Substance: FUROSEMIDE
  10. GLIPIZIDE [Concomitant]
     Active Substance: GLIPIZIDE
  11. JANUVIA [Concomitant]
     Active Substance: SITAGLIPTIN PHOSPHATE
  12. KETOROLAC [Concomitant]
     Active Substance: KETOROLAC TROMETHAMINE
  13. LACTULOSE [Concomitant]
     Active Substance: LACTULOSE
  14. LANTUS [Concomitant]
     Active Substance: INSULIN GLARGINE
  15. LATANOPROST [Concomitant]
     Active Substance: LATANOPROST
  16. SENNA [Concomitant]
     Active Substance: SENNA LEAF\SENNOSIDES\SENNOSIDES A AND B
  17. LINZESS [Concomitant]
     Active Substance: LINACLOTIDE
  18. LOSARTAN [Concomitant]
     Active Substance: LOSARTAN
  19. METFORMIN [Concomitant]
     Active Substance: METFORMIN HYDROCHLORIDE
  20. METOPROLOL [Concomitant]
     Active Substance: METOPROLOL
  21. OFLOXACIN [Concomitant]
     Active Substance: OFLOXACIN
  22. OMEPRAZOLE [Concomitant]
     Active Substance: OMEPRAZOLE

REACTIONS (1)
  - Death [None]
